FAERS Safety Report 6575503-4 (Version None)
Quarter: 2010Q1

REPORT INFORMATION
  Report Type: 
  Country: None (occurrence: None)
  Receive Date: 20100209
  Receipt Date: 20100129
  Transmission Date: 20100710
  Serious: Yes (Life-Threatening, Hospitalization, Disabling)
  Sender: FDA-Public Use
  Company Number: GB-JNJFOC-20100202939

PATIENT
  Age: 29 Year
  Sex: Female
  Weight: 55 kg

DRUGS (4)
  1. PARACETAMOL [Suspect]
     Indication: DRUG USE FOR UNKNOWN INDICATION
  2. PARACETAMOL [Suspect]
  3. MIRTAZAPINE [Suspect]
     Indication: DEPRESSION
  4. ZOPICLONE [Concomitant]

REACTIONS (4)
  - HEPATIC FAILURE [None]
  - JAUNDICE [None]
  - OVERDOSE [None]
  - PRURITUS [None]
